FAERS Safety Report 5711503-1 (Version None)
Quarter: 2008Q2

REPORT INFORMATION
  Report Type: 
  Country: None (occurrence: None)
  Receive Date: 20080421
  Receipt Date: 20080411
  Transmission Date: 20081010
  Serious: Yes (Hospitalization)
  Sender: FDA-Public Use
  Company Number: NO-MERCK-0804NOR00007

PATIENT
  Age: 89 Year
  Sex: Female
  Weight: 62 kg

DRUGS (7)
  1. HYZAAR [Suspect]
     Indication: HYPERTENSION
     Route: 048
     Dates: end: 20080312
  2. OMEGA-3 MARINE TRIGLYCERIDES [Concomitant]
     Indication: SUPPLEMENTATION THERAPY
     Route: 048
  3. DICLOFENAC SODIUM [Concomitant]
     Indication: BACK PAIN
     Route: 048
     Dates: start: 20080311, end: 20080312
  4. PREDNISOLONE [Concomitant]
     Route: 048
     Dates: end: 20080312
  5. ALLOPURINOL [Concomitant]
     Indication: GOUT
     Route: 048
  6. VITAMINS (UNSPECIFIED) [Concomitant]
     Indication: SUPPLEMENTATION THERAPY
     Route: 048
  7. BUMETANIDE [Suspect]
     Indication: HYPERTENSION
     Route: 048
     Dates: end: 20080312

REACTIONS (3)
  - HYPOKALAEMIA [None]
  - HYPONATRAEMIA [None]
  - INAPPROPRIATE ANTIDIURETIC HORMONE SECRETION [None]
